FAERS Safety Report 8576751-4 (Version None)
Quarter: 2012Q3

REPORT INFORMATION
  Report Type: 
  Country: None (occurrence: None)
  Receive Date: 20120725
  Receipt Date: 20120711
  Transmission Date: 20120928
  Serious: Yes (Other)
  Sender: FDA-Public Use
  Company Number: DSA_58467_2012

PATIENT
  Sex: Male

DRUGS (4)
  1. PRAVACHOL [Concomitant]
  2. OCEAN COMPLETE SINUS IRRIGATION [Suspect]
     Indication: NASAL CONGESTION
     Dosage: (ONCE DAILY NASAL)
     Route: 045
     Dates: start: 20120627, end: 20120703
  3. ASPIRIN [Concomitant]
  4. LISINOPRIL [Concomitant]

REACTIONS (1)
  - EPISTAXIS [None]
